FAERS Safety Report 9659773 (Version 1)
Quarter: 2013Q4

REPORT INFORMATION
  Report Type: Spontaneous
  Country: US (occurrence: US)
  Receive Date: 20131031
  Receipt Date: 20131031
  Transmission Date: 20140711
  Serious: No
  Sender: FDA-Public Use
  Company Number: US-PFIZER INC-2013307556

PATIENT
  Age: 55 Year
  Sex: Female
  Weight: 90.7 kg

DRUGS (3)
  1. GENOTROPIN MQ [Suspect]
     Indication: GROWTH HORMONE DEFICIENCY
     Dosage: 0.2 MG, 2X/DAY
     Route: 058
     Dates: start: 2010
  2. GENOTROPIN MQ [Suspect]
     Dosage: 0.2 MG, 2X/DAY
     Route: 058
  3. GENOTROPIN MQ [Suspect]
     Dosage: 0.6 MG, 2X/DAY
     Route: 058

REACTIONS (3)
  - Feeling abnormal [Unknown]
  - Product quality issue [Unknown]
  - Weight decreased [Unknown]
